FAERS Safety Report 20629162 (Version 1)
Quarter: 2022Q1

REPORT INFORMATION
  Report Type: Spontaneous
  Country: FR (occurrence: FR)
  Receive Date: 20220323
  Receipt Date: 20220323
  Transmission Date: 20220424
  Serious: Yes (Hospitalization)
  Sender: FDA-Public Use
  Company Number: None

PATIENT
  Age: 69 Year
  Sex: Female

DRUGS (2)
  1. MIRTAZAPINE [Suspect]
     Active Substance: MIRTAZAPINE
     Indication: Intentional overdose
     Dosage: 15 MG NP
     Route: 048
     Dates: start: 20220208, end: 20220208
  2. OXAZEPAM [Suspect]
     Active Substance: OXAZEPAM
     Indication: Intentional overdose
     Dosage: 30 MG NP
     Route: 048
     Dates: start: 20220208, end: 20220208

REACTIONS (3)
  - Poisoning deliberate [Recovered/Resolved]
  - Coma [Recovered/Resolved]
  - Hypotension [Recovered/Resolved]

NARRATIVE: CASE EVENT DATE: 20220208
